FAERS Safety Report 5365706-9 (Version None)
Quarter: 2007Q2

REPORT INFORMATION
  Report Type: 
  Country: None (occurrence: None)
  Receive Date: 20070621
  Receipt Date: 20070607
  Transmission Date: 20071010
  Serious: Yes (Disabling)
  Sender: FDA-Public Use
  Company Number: FI-GENENTECH-243261

PATIENT
  Sex: Female

DRUGS (3)
  1. AVASTIN [Suspect]
     Indication: COLORECTAL CANCER
     Route: 042
  2. XELODA [Concomitant]
     Indication: COLORECTAL CANCER
     Route: 048
  3. CAMPTOSAR [Concomitant]
     Indication: COLORECTAL CANCER
     Route: 042

REACTIONS (2)
  - BONE PAIN [None]
  - OSTEOPOROSIS [None]
